FAERS Safety Report 6341838-3 (Version None)
Quarter: 2009Q3

REPORT INFORMATION
  Report Type: 
  Country: None (occurrence: None)
  Receive Date: 20090904
  Receipt Date: 20090902
  Transmission Date: 20100115
  Serious: Yes (Other)
  Sender: FDA-Public Use
  Company Number: US-GILEAD-2009-0024047

PATIENT
  Sex: Female

DRUGS (3)
  1. LETAIRIS [Suspect]
     Indication: PULMONARY ARTERIAL HYPERTENSION
     Route: 048
     Dates: start: 20090820
  2. FENTANYL [Concomitant]
  3. ADVAIR HFA [Concomitant]

REACTIONS (5)
  - HEADACHE [None]
  - NASAL CONGESTION [None]
  - RENAL PAIN [None]
  - SUICIDAL IDEATION [None]
  - THIRST [None]
